FAERS Safety Report 24916739 (Version 1)
Quarter: 2025Q1

REPORT INFORMATION
  Report Type: Spontaneous
  Country: IT (occurrence: IT)
  Receive Date: 20250203
  Receipt Date: 20250203
  Transmission Date: 20250409
  Serious: Yes (Hospitalization)
  Sender: ALEXION PHARMACEUTICALS
  Company Number: None

PATIENT
  Age: 45 Day
  Weight: 4.1 kg

DRUGS (1)
  1. BEYFORTUS [Suspect]
     Active Substance: NIRSEVIMAB-ALIP
     Indication: Prophylaxis
     Route: 065

REACTIONS (5)
  - Respiratory syncytial virus infection [Recovering/Resolving]
  - Productive cough [Not Recovered/Not Resolved]
  - Rhinitis [Recovering/Resolving]
  - Viral tracheitis [Recovering/Resolving]
  - Crying [Recovered/Resolved]
